FAERS Safety Report 6259756-8 (Version None)
Quarter: 2009Q3

REPORT INFORMATION
  Report Type: 
  Country: None (occurrence: None)
  Receive Date: 20090708
  Receipt Date: 20090616
  Transmission Date: 20100115
  Serious: Yes (Hospitalization)
  Sender: FDA-Public Use
  Company Number: PHHO2009US07141

PATIENT
  Sex: Female
  Weight: 61.37 kg

DRUGS (13)
  1. ANASTROZOLE COMP-ANA+ [Suspect]
     Indication: BREAST CANCER
     Dosage: 1 MG, QD
     Route: 048
     Dates: start: 20090311
  2. BENAZEPRIL HYDROCHLORIDE [Suspect]
  3. DILTIAZEM [Suspect]
  4. FUROSEMIDE [Concomitant]
  5. CALCIUM [Concomitant]
  6. LEVOTHYROXINE SODIUM [Concomitant]
  7. FLUTICASONE W/SALMETEROL [Concomitant]
  8. TIOTROPIUM [Concomitant]
  9. POTASSIUM CHLORIDE [Concomitant]
  10. OMEPRAZOLE [Concomitant]
     Dosage: UNK
  11. HERBAL EXTRACTS NOS [Concomitant]
  12. CITRACAL [Concomitant]
  13. METAMUCIL [Concomitant]

REACTIONS (8)
  - CONTUSION [None]
  - EXTRASYSTOLES [None]
  - FALL [None]
  - MITRAL VALVE INCOMPETENCE [None]
  - SUPRAVENTRICULAR EXTRASYSTOLES [None]
  - SYNCOPE [None]
  - VENTRICULAR ARRHYTHMIA [None]
  - WANDERING PACEMAKER [None]
